FAERS Safety Report 9536447 (Version 1)
Quarter: 2013Q3

REPORT INFORMATION
  Report Type: Spontaneous
  Country: US (occurrence: None)
  Receive Date: 20130917
  Receipt Date: 20130917
  Transmission Date: 20140515
  Serious: Yes (Life-Threatening, Other)
  Sender: FDA-Public Use
  Company Number: None

PATIENT
  Age: 59 Year
  Sex: Female
  Weight: 54.43 kg

DRUGS (1)
  1. FORTEO [Suspect]
     Indication: OSTEOPOROSIS
     Dosage: 20 MCG DAILY ONCE DAILY GIVEN INTO/UNDER THE SKIN
     Dates: start: 20130911, end: 20130911

REACTIONS (9)
  - Dizziness [None]
  - Nausea [None]
  - Abdominal discomfort [None]
  - Fatigue [None]
  - Malaise [None]
  - Palpitations [None]
  - Chest pain [None]
  - Dyspnoea [None]
  - Chest discomfort [None]
